FAERS Safety Report 5858226-6 (Version None)
Quarter: 2008Q3

REPORT INFORMATION
  Report Type: 
  Country: None (occurrence: None)
  Receive Date: 20080826
  Receipt Date: 20080821
  Transmission Date: 20090109
  Serious: Yes (Hospitalization)
  Sender: FDA-Public Use
  Company Number: A0733987A

PATIENT
  Age: 49 Year
  Sex: Male
  Weight: 130.9 kg

DRUGS (6)
  1. AVANDIA [Suspect]
     Indication: TYPE 2 DIABETES MELLITUS
     Dosage: 4MG PER DAY
     Route: 048
     Dates: start: 20060426, end: 20060827
  2. LIPITOR [Concomitant]
  3. ZETIA [Concomitant]
  4. FLEXERIL [Concomitant]
  5. LORTAB [Concomitant]
  6. MOBIC [Concomitant]

REACTIONS (6)
  - BACK INJURY [None]
  - CARDIAC FAILURE CONGESTIVE [None]
  - CEREBROVASCULAR ACCIDENT [None]
  - CONDITION AGGRAVATED [None]
  - NECK INJURY [None]
  - TRANSIENT ISCHAEMIC ATTACK [None]
